FAERS Safety Report 12341889 (Version 2)
Quarter: 2016Q2

REPORT INFORMATION
  Report Type: Spontaneous
  Country: US (occurrence: US)
  Receive Date: 20160506
  Receipt Date: 20160620
  Transmission Date: 20160815
  Serious: Yes (Hospitalization)
  Sender: FDA-Public Use
  Company Number: US-ACTELION-A-US2016-135505

PATIENT
  Age: 65 Year
  Sex: Female

DRUGS (14)
  1. FENOFIBRATE. [Concomitant]
     Active Substance: FENOFIBRATE
  2. METFORMIN [Concomitant]
     Active Substance: METFORMIN HYDROCHLORIDE
  3. AZATHIOPRINE. [Concomitant]
     Active Substance: AZATHIOPRINE
  4. TYVASO [Concomitant]
     Active Substance: TREPROSTINIL
     Dosage: 9 BREATHS QID
     Dates: start: 20150102
  5. DIGOXIN. [Concomitant]
     Active Substance: DIGOXIN
  6. GLIPIZIDE. [Concomitant]
     Active Substance: GLIPIZIDE
  7. METOLAZONE. [Concomitant]
     Active Substance: METOLAZONE
  8. ADCIRCA [Concomitant]
     Active Substance: TADALAFIL
  9. CREON [Concomitant]
     Active Substance: PANCRELIPASE AMYLASE\PANCRELIPASE LIPASE\PANCRELIPASE PROTEASE
  10. TRAMADOL. [Concomitant]
     Active Substance: TRAMADOL
  11. IRON [Concomitant]
     Active Substance: IRON
  12. OPSUMIT [Suspect]
     Active Substance: MACITENTAN
     Indication: PULMONARY ARTERIAL HYPERTENSION
     Dosage: 10 MG, QD
     Route: 048
     Dates: start: 20150518
  13. PREDNISONE. [Concomitant]
     Active Substance: PREDNISONE
  14. COUMADIN [Concomitant]
     Active Substance: WARFARIN SODIUM

REACTIONS (2)
  - Cough [Not Recovered/Not Resolved]
  - Dyspnoea [Not Recovered/Not Resolved]

NARRATIVE: CASE EVENT DATE: 20160401
